FAERS Safety Report 4729935-7 (Version None)
Quarter: 2005Q3

REPORT INFORMATION
  Report Type: 
  Country: None (occurrence: None)
  Receive Date: 20050729
  Receipt Date: 20050729
  Transmission Date: 20060218
  Serious: No
  Sender: FDA-Public Use
  Company Number: None

PATIENT
  Age: 82 Year
  Sex: Male
  Weight: 77 kg

DRUGS (2)
  1. WARFARIN 2 MG - ODD DAYS ENDO [Suspect]
     Indication: CEREBROVASCULAR ACCIDENT
     Dosage: 2 MG QOD PO (ODD)
     Route: 048
     Dates: start: 20050623, end: 20050706
  2. WARFARIN 3 MG- EVEN DAYS ENDO [Suspect]
     Dosage: 3 MG QOD (EVEN) PO
     Route: 048

REACTIONS (2)
  - INTERNATIONAL NORMALISED RATIO INCREASED [None]
  - PROTHROMBIN TIME PROLONGED [None]
